FAERS Safety Report 21563282 (Version 1)
Quarter: 2022Q4

REPORT INFORMATION
  Report Type: Report from Study
  Country: DO (occurrence: DO)
  Receive Date: 20221107
  Receipt Date: 20221107
  Transmission Date: 20230112
  Serious: Yes (Other)
  Sender: FDA-Public Use
  Company Number: DO-JNJFOC-20221059574

PATIENT
  Age: 48 Year
  Sex: Male

DRUGS (1)
  1. IMBRUVICA [Suspect]
     Active Substance: IBRUTINIB
     Indication: Chronic lymphocytic leukaemia
     Route: 048
     Dates: start: 20210620

REACTIONS (3)
  - Eye ulcer [Unknown]
  - Eye infection [Unknown]
  - Eye injury [Unknown]

NARRATIVE: CASE EVENT DATE: 20221001
